FAERS Safety Report 24889711 (Version 1)
Quarter: 2025Q1

REPORT INFORMATION
  Report Type: Report from Study
  Country: CA (occurrence: CA)
  Receive Date: 20250127
  Receipt Date: 20250127
  Transmission Date: 20250408
  Serious: Yes (Other)
  Sender: SANDOZ
  Company Number: CA-002147023-NVSC2022CA035281

PATIENT
  Age: 30 Year
  Sex: Male

DRUGS (1)
  1. HYRIMOZ [Suspect]
     Active Substance: ADALIMUMAB-ADAZ
     Indication: Crohn^s disease
     Dosage: 40 MG, Q2W
     Route: 058
     Dates: start: 20211014

REACTIONS (6)
  - Crohn^s disease [Unknown]
  - General physical health deterioration [Unknown]
  - General physical condition abnormal [Unknown]
  - Abdominal pain [Unknown]
  - Drug effect less than expected [Unknown]
  - Product use issue [Unknown]

NARRATIVE: CASE EVENT DATE: 20240307
